FAERS Safety Report 19521785 (Version 1)
Quarter: 2021Q3

REPORT INFORMATION
  Report Type: Spontaneous
  Country: CA (occurrence: CA)
  Receive Date: 20210712
  Receipt Date: 20210712
  Transmission Date: 20211014
  Serious: Yes (Life-Threatening, Hospitalization, Disabling)
  Sender: FDA-Public Use
  Company Number: CA-PFIZER INC-2021797415

PATIENT
  Age: 82 Year

DRUGS (5)
  1. HEPARIN SODIUM. [Suspect]
     Active Substance: HEPARIN SODIUM
     Indication: ADJUVANT THERAPY
  2. HEPARIN SODIUM. [Suspect]
     Active Substance: HEPARIN SODIUM
     Indication: CORONARY ARTERIAL STENT INSERTION
     Dosage: 100 UNK
     Route: 042
  3. HEPARIN SODIUM. [Suspect]
     Active Substance: HEPARIN SODIUM
     Indication: CATHETER MANAGEMENT
  4. FENTANYL. [Concomitant]
     Active Substance: FENTANYL
  5. MIDAZOLAM. [Concomitant]
     Active Substance: MIDAZOLAM

REACTIONS (3)
  - Thrombosis [Unknown]
  - Cerebral infarction [Unknown]
  - Embolic cerebral infarction [Unknown]
